FAERS Safety Report 7674726-0 (Version None)
Quarter: 2011Q3

REPORT INFORMATION
  Report Type: 
  Country: None (occurrence: None)
  Receive Date: 20110810
  Receipt Date: 20110408
  Transmission Date: 20111222
  Serious: Yes (Other)
  Sender: FDA-Public Use
  Company Number: CA-GLAXOSMITHKLINE-A0922277A

PATIENT
  Sex: Female
  Weight: 64.5 kg

DRUGS (13)
  1. SYNTHROID [Concomitant]
  2. LEVOTHYROXINE SODIUM [Concomitant]
     Dosage: .075MG UNKNOWN
     Route: 065
  3. VITAMIN B COMPLEX CAP [Concomitant]
  4. SERTRALINE HYDROCHLORIDE [Concomitant]
     Route: 065
  5. ADVAIR DISKUS 100/50 [Suspect]
     Indication: ASTHMA
     Dosage: 1PUFF TWICE PER DAY
     Route: 055
     Dates: start: 20030101
  6. CALCIUM CARBONATE [Concomitant]
     Indication: ARTHRALGIA
     Route: 065
  7. VENTOLIN HFA [Concomitant]
     Dosage: 1PUFF AS REQUIRED
     Route: 065
  8. BIOTIN [Concomitant]
     Route: 065
  9. PREDNISONE [Concomitant]
  10. ANTIBIOTIC [Concomitant]
     Dates: start: 20101225
  11. PANTOPRAZOLE [Concomitant]
     Dosage: 40MG UNKNOWN
     Route: 065
  12. ZINC [Concomitant]
     Route: 065
  13. VITAMIN TAB [Concomitant]
     Route: 065

REACTIONS (17)
  - WEIGHT INCREASED [None]
  - NASOPHARYNGITIS [None]
  - VOMITING [None]
  - CHEST X-RAY ABNORMAL [None]
  - THYROID DISORDER [None]
  - PANIC ATTACK [None]
  - EXERCISE TOLERANCE DECREASED [None]
  - PAIN [None]
  - MALAISE [None]
  - PNEUMONITIS [None]
  - DYSPEPSIA [None]
  - EXTRAPULMONARY TUBERCULOSIS [None]
  - COLD SWEAT [None]
  - WEIGHT LOSS POOR [None]
  - BODY HEIGHT DECREASED [None]
  - NAUSEA [None]
  - FATIGUE [None]
